FAERS Safety Report 10989223 (Version 2)
Quarter: 2024Q3

REPORT INFORMATION
  Report Type: Spontaneous
  Country: GB (occurrence: GB)
  Receive Date: 20150406
  Receipt Date: 20240726
  Transmission Date: 20241016
  Serious: Yes (Life-Threatening, Hospitalization, Other)
  Sender: AUROBINDO
  Company Number: GB-AUROBINDO-AUR-APL-2015-02854

PATIENT
  Age: 42 Year
  Sex: Female

DRUGS (2)
  1. QUETIAPINE [Suspect]
     Active Substance: QUETIAPINE
     Indication: Bipolar disorder
     Dosage: 150 MILLIGRAM, DAILY (50MG IN MORNING AND 100MG AT NIGHT)
     Route: 048
  2. QUETIAPINE [Suspect]
     Active Substance: QUETIAPINE
     Indication: Anxiety

REACTIONS (3)
  - Suicidal ideation [Recovering/Resolving]
  - Toxicity to various agents [Recovering/Resolving]
  - Overdose [Recovering/Resolving]

NARRATIVE: CASE EVENT DATE: 20141021
